FAERS Safety Report 15155325 (Version 1)
Quarter: 2018Q3

REPORT INFORMATION
  Report Type: Report from Study
  Country: US (occurrence: US)
  Receive Date: 20180717
  Receipt Date: 20180717
  Transmission Date: 20181010
  Serious: Yes (Other)
  Sender: FDA-Public Use
  Company Number: US-SA-2018SA181610

PATIENT
  Age: 66 Year
  Sex: Male

DRUGS (2)
  1. INSULIN GLARGINE [Suspect]
     Active Substance: INSULIN GLARGINE
     Dosage: 105 UNK
     Route: 058
  2. INSULIN GLARGINE [Suspect]
     Active Substance: INSULIN GLARGINE
     Indication: BLOOD GLUCOSE NORMAL
     Dosage: 100 U, BID
     Route: 058

REACTIONS (6)
  - Peripheral swelling [Unknown]
  - Cataract [Not Recovered/Not Resolved]
  - Underdose [Unknown]
  - Extra dose administered [Unknown]
  - Blood glucose abnormal [Unknown]
  - Drug dose omission [Unknown]
